FAERS Safety Report 17489028 (Version 1)
Quarter: 2020Q1

REPORT INFORMATION
  Report Type: Spontaneous
  Country: GB (occurrence: GB)
  Receive Date: 20200303
  Receipt Date: 20200303
  Transmission Date: 20200409
  Serious: Yes (Life-Threatening, Hospitalization, Other)
  Sender: FDA-Public Use
  Company Number: GB-ASTRAZENECA-2020SE29932

PATIENT
  Age: 85 Year
  Sex: Female

DRUGS (5)
  1. CO-AMILOZIDE [Suspect]
     Active Substance: AMILORIDE HYDROCHLORIDE\HYDROCHLOROTHIAZIDE
     Dosage: 5/50, 1 DF EVERY OTHER DAY
     Route: 048
     Dates: end: 20190522
  2. CALCICHEW D3 [Concomitant]
     Active Substance: CALCIUM\CHOLECALCIFEROL
  3. OMEPRAZOLE. [Suspect]
     Active Substance: OMEPRAZOLE
     Route: 048
     Dates: end: 20190522
  4. WARFARIN [Concomitant]
     Active Substance: WARFARIN
  5. DRONEDARONE [Concomitant]
     Active Substance: DRONEDARONE
     Dosage: 400.0MG UNKNOWN

REACTIONS (8)
  - Dizziness [Unknown]
  - Haemorrhage intracranial [Unknown]
  - Hypokalaemia [Recovered/Resolved]
  - Hypomagnesaemia [Recovered/Resolved]
  - Syncope [Unknown]
  - Pleural effusion [Unknown]
  - Atrial fibrillation [Recovered/Resolved]
  - Hyponatraemia [Recovered/Resolved with Sequelae]

NARRATIVE: CASE EVENT DATE: 20190522
